FAERS Safety Report 8795785 (Version 1)
Quarter: 2012Q4

REPORT INFORMATION
  Report Type: 
  Country: US (occurrence: US)
  Receive Date: 20120920
  Receipt Date: 20120920
  Transmission Date: 20130627
  Serious: Yes (Other)
  Sender: FDA-Public Use
  Company Number: US-PFIZER INC-2012228461

PATIENT
  Age: 69 Year
  Sex: Female
  Weight: 96.15 kg

DRUGS (18)
  1. REVATIO [Suspect]
     Indication: PULMONARY ARTERIAL HYPERTENSION
     Dosage: 20 mg, 3x/day
  2. METOPROLOL TARTRATE [Suspect]
     Indication: HEART RATE DECREASED
     Dosage: 25 mg, 2x/day
  3. DILTIAZEM HCL [Suspect]
     Indication: HYPERTENSION
     Dosage: 180 mg, daily
     Route: 048
  4. OMEGA-3 [Interacting]
     Dosage: UNK
  5. CALCIUM CARBONATE [Suspect]
     Dosage: UNK
  6. CITALOPRAM HBR [Suspect]
     Indication: DEPRESSION
     Dosage: 40 mg, daily
     Route: 048
  7. TRACLEER [Suspect]
     Indication: PULMONARY ARTERIAL HYPERTENSION
     Dosage: 125 mg, 2x/day
  8. ACETAMINOPHEN\TRAMADOL [Suspect]
     Indication: ARTHRITIS
     Dosage: 37.5 mg, 3x/day
     Route: 048
  9. DIGOXIN [Interacting]
     Dosage: 0.25 mg, daily
  10. METOLAZONE [Suspect]
     Indication: FLUID RETENTION
     Dosage: 2.5 mg,daily
  11. PEPCID [Suspect]
     Indication: GASTROOESOPHAGEAL REFLUX DISEASE
     Dosage: 20 mg, UNK
  12. ALLOPURINOL [Suspect]
     Indication: GOUT
     Dosage: half tablet of 300mg, daily
     Route: 048
  13. COUMADIN [Suspect]
     Indication: THROMBOSIS
     Dosage: UNK
  14. COUMADIN [Suspect]
     Dosage: 15mg daily except on Thursday and 20mg on Thursday
  15. KLOR-CON [Suspect]
     Indication: BLOOD POTASSIUM DECREASED
     Dosage: 20 mEq, daily
  16. IRON [Suspect]
     Indication: ANAEMIA
     Dosage: UNK
     Route: 048
  17. MAGNESIUM [Suspect]
     Dosage: UNK
  18. ZINC [Suspect]
     Dosage: UNK

REACTIONS (9)
  - Pruritus [Unknown]
  - Generalised oedema [Unknown]
  - Oedema peripheral [Unknown]
  - Urticaria [Unknown]
  - Drug interaction [Unknown]
  - Insomnia [Not Recovered/Not Resolved]
  - Restlessness [Not Recovered/Not Resolved]
  - Gait disturbance [Not Recovered/Not Resolved]
  - Somnolence [None]
